FAERS Safety Report 9894328 (Version 1)
Quarter: 2014Q1

REPORT INFORMATION
  Report Type: Report from Study
  Country: US (occurrence: US)
  Receive Date: 20140213
  Receipt Date: 20140213
  Transmission Date: 20141002
  Serious: Yes (Other)
  Sender: FDA-Public Use
  Company Number: US-TEVA-461026USA

PATIENT
  Age: 38 Year
  Sex: Male

DRUGS (1)
  1. COPAXONE [Suspect]
     Indication: MULTIPLE SCLEROSIS
     Dates: start: 20140121

REACTIONS (2)
  - Haematochezia [Not Recovered/Not Resolved]
  - Multiple sclerosis [Not Recovered/Not Resolved]
